FAERS Safety Report 8710567 (Version 3)
Quarter: 2012Q4

REPORT INFORMATION
  Report Type: 
  Country: US (occurrence: US)
  Receive Date: 20120807
  Receipt Date: 20120906
  Transmission Date: 20130627
  Serious: Yes (Other)
  Sender: FDA-Public Use
  Company Number: US-PFIZER INC-2012189414

PATIENT
  Age: 79 Year
  Sex: Female
  Weight: 47.62 kg

DRUGS (1)
  1. CELEBREX [Suspect]
     Indication: ARTHRITIS
     Dosage: 200 mg, 1x/day
     Route: 048

REACTIONS (5)
  - Hearing impaired [Not Recovered/Not Resolved]
  - Oesophageal disorder [Unknown]
  - Memory impairment [Not Recovered/Not Resolved]
  - Weight decreased [Unknown]
  - Red blood cell sedimentation rate increased [Unknown]
